FAERS Safety Report 8578177-6 (Version None)
Quarter: 2012Q3

REPORT INFORMATION
  Report Type: 
  Country: None (occurrence: None)
  Receive Date: 20120808
  Receipt Date: 20120802
  Transmission Date: 20120928
  Serious: No
  Sender: FDA-Public Use
  Company Number: US-PFIZER INC-2012190627

PATIENT
  Sex: Female

DRUGS (3)
  1. IMDUR [Suspect]
     Dosage: UNK
     Dates: start: 20110101, end: 20110101
  2. NORVASC [Suspect]
     Indication: HYPERTENSION
     Dosage: UNK
     Dates: start: 20110101, end: 20110101
  3. ATENOLOL [Concomitant]
     Dosage: UNK

REACTIONS (1)
  - MALAISE [None]
